FAERS Safety Report 13434635 (Version 1)
Quarter: 2017Q2

REPORT INFORMATION
  Report Type: Spontaneous
  Country: US (occurrence: US)
  Receive Date: 20170412
  Receipt Date: 20170412
  Transmission Date: 20170830
  Serious: Yes (Other)
  Sender: FDA-Public Use
  Company Number: None

PATIENT
  Age: 69 Year
  Sex: Female
  Weight: 62.1 kg

DRUGS (17)
  1. CLOPEDIGREL [Concomitant]
  2. RANITIDINE. [Concomitant]
     Active Substance: RANITIDINE
  3. DIAZEPAM. [Concomitant]
     Active Substance: DIAZEPAM
  4. CALCIUM [Concomitant]
     Active Substance: CALCIUM
  5. OMEGA 3 [Concomitant]
     Active Substance: OMEGA-3 FATTY ACIDS
  6. ASPIRIN. [Concomitant]
     Active Substance: ASPIRIN
  7. FLAXSEED [Concomitant]
     Active Substance: FLAX SEED
  8. LOSARTAN. [Concomitant]
     Active Substance: LOSARTAN
  9. VITAMINS B COMPLEX [Concomitant]
  10. VITAMIN D3 [Concomitant]
     Active Substance: CHOLECALCIFEROL
  11. MAGNESIUM [Concomitant]
     Active Substance: MAGNESIUM
  12. BELSOMRA [Suspect]
     Active Substance: SUVOREXANT
     Indication: INSOMNIA
     Dosage: ?          QUANTITY:1 TABLET(S);?
     Route: 048
     Dates: start: 20170411, end: 20170412
  13. C [Concomitant]
  14. ACETAMNOPHEN/HYDROCODONE [Concomitant]
     Active Substance: ACETAMINOPHEN\HYDROCODONE
  15. ZETIA [Concomitant]
     Active Substance: EZETIMIBE
  16. COQ10 [Concomitant]
     Active Substance: UBIDECARENONE
  17. PROBIOTICS [Concomitant]
     Active Substance: PROBIOTICS NOS

REACTIONS (3)
  - Drug ineffective [None]
  - Abnormal dreams [None]
  - Sleep disorder [None]

NARRATIVE: CASE EVENT DATE: 20170411
